FAERS Safety Report 14655568 (Version 1)
Quarter: 2018Q1

REPORT INFORMATION
  Report Type: Spontaneous
  Country: ES (occurrence: ES)
  Receive Date: 20180319
  Receipt Date: 20180319
  Transmission Date: 20180509
  Serious: Yes (Hospitalization, Other)
  Sender: FDA-Public Use
  Company Number: ES-TEVA-2018-ES-869526

PATIENT
  Age: 80 Year
  Sex: Female

DRUGS (1)
  1. ACIDO IBANDRONICO APOTEX COMPRIMIDOS RECUBIERTOS CON PELICULA EFG [Suspect]
     Active Substance: IBANDRONIC ACID
     Indication: OSTEOPOROSIS
     Route: 048

REACTIONS (5)
  - Motor dysfunction [Recovering/Resolving]
  - Limb deformity [Unknown]
  - Pain in extremity [Recovering/Resolving]
  - Femur fracture [Recovering/Resolving]
  - Osteoarthritis [Recovering/Resolving]
